FAERS Safety Report 23689114 (Version 1)
Quarter: 2024Q1

REPORT INFORMATION
  Report Type: Spontaneous
  Country: IT (occurrence: IT)
  Receive Date: 20240330
  Receipt Date: 20240330
  Transmission Date: 20240410
  Serious: Yes (Other)
  Sender: FDA-Public Use
  Company Number: IT-MINISAL02-975947

PATIENT
  Age: 57 Year
  Sex: Female

DRUGS (4)
  1. CARBOPLATIN [Suspect]
     Active Substance: CARBOPLATIN
     Indication: Non-small cell lung cancer
     Dosage: 467.95 MILLIGRAM (SOMMINISTRAZIONE CICLICA)
     Route: 042
     Dates: start: 20240212
  2. PEMETREXED [Suspect]
     Active Substance: PEMETREXED
     Indication: Non-small cell lung cancer
     Dosage: 800 MILLIGRAM (SOMMINISTRAZIONE CICLICA)
     Route: 042
     Dates: start: 20240212
  3. IPILIMUMAB [Suspect]
     Active Substance: IPILIMUMAB
     Indication: Non-small cell lung cancer
     Dosage: 70 MILLIGRAM ( SOMMINISTRAZIONE CICLICA)
     Route: 042
     Dates: start: 20240212
  4. NIVOLUMAB [Suspect]
     Active Substance: NIVOLUMAB
     Indication: Non-small cell lung cancer
     Dosage: 360 MILLIGRAM (SOMMINISTRAZIONE CICLICA)
     Route: 042
     Dates: start: 20240212

REACTIONS (1)
  - Hypertransaminasaemia [Recovering/Resolving]

NARRATIVE: CASE EVENT DATE: 20240301
